FAERS Safety Report 24886889 (Version 1)
Quarter: 2025Q1

REPORT INFORMATION
  Report Type: Spontaneous
  Country: US (occurrence: US)
  Receive Date: 20250127
  Receipt Date: 20250127
  Transmission Date: 20250408
  Serious: No
  Sender: TEVA
  Company Number: US-TEVA-VS-3285379

PATIENT
  Age: 44 Year
  Sex: Female

DRUGS (1)
  1. PENICILLIN V POTASSIUM [Suspect]
     Active Substance: PENICILLIN V POTASSIUM
     Indication: Product used for unknown indication
     Route: 065
     Dates: start: 2024

REACTIONS (3)
  - Cough [Unknown]
  - Product taste abnormal [Unknown]
  - Dysphagia [Unknown]

NARRATIVE: CASE EVENT DATE: 20250106
